FAERS Safety Report 6518157-5 (Version None)
Quarter: 2009Q4

REPORT INFORMATION
  Report Type: 
  Country: None (occurrence: None)
  Receive Date: 20091223
  Receipt Date: 20091223
  Transmission Date: 20100525
  Serious: No
  Sender: FDA-Public Use
  Company Number: None

PATIENT
  Sex: Female
  Weight: 53.5244 kg

DRUGS (1)
  1. CIPRO [Suspect]
     Indication: TOOTH INFECTION
     Dosage: ONE PILL THREE TIMES DAILY PO
     Route: 048
     Dates: start: 20080301, end: 20080303

REACTIONS (7)
  - BACK PAIN [None]
  - BODY TEMPERATURE FLUCTUATION [None]
  - DIARRHOEA [None]
  - DYSPNOEA [None]
  - DYSSTASIA [None]
  - NEUROPATHY PERIPHERAL [None]
  - TENDONITIS [None]
